FAERS Safety Report 14575441 (Version 1)
Quarter: 2018Q1

REPORT INFORMATION
  Report Type: Spontaneous
  Country: US (occurrence: US)
  Receive Date: 20180227
  Receipt Date: 20180227
  Transmission Date: 20180509
  Serious: No
  Sender: FDA-Public Use
  Company Number: US-ROCHE-2021924

PATIENT
  Sex: Female
  Weight: 68.03 kg

DRUGS (1)
  1. XOLAIR [Suspect]
     Active Substance: OMALIZUMAB
     Indication: ASTHMA
     Route: 058
     Dates: start: 20170906, end: 20171101

REACTIONS (1)
  - Granuloma annulare [Unknown]

NARRATIVE: CASE EVENT DATE: 20171025
